FAERS Safety Report 6107075 (Version 4)
Quarter: 2014Q1

REPORT INFORMATION
  Report Type: Report from Study
  Country: JP (occurrence: JP)
  Receive Date: 20060815
  Receipt Date: 20140206
  Transmission Date: 20141002
  Serious: Yes (Hospitalization)
  Sender: FDA-Public Use
  Company Number: JP-JNJFOC-20060102989

PATIENT
  Age: 85 Year
  Sex: Female
  Weight: 54 kg

DRUGS (30)
  1. FENTANYL [Suspect]
     Indication: PAIN
     Route: 062
     Dates: start: 20050831
  2. NORVASC [Concomitant]
     Indication: HYPERTENSION
     Route: 048
  3. ALOSENN [Concomitant]
     Indication: CONSTIPATION
     Route: 048
     Dates: end: 20060723
  4. HALCION [Concomitant]
     Indication: INSOMNIA
     Route: 048
     Dates: start: 20060819
  5. HALCION [Concomitant]
     Indication: INSOMNIA
     Route: 048
     Dates: end: 20060818
  6. MEILAX [Concomitant]
     Indication: INSOMNIA
     Route: 048
  7. ZANTAC [Concomitant]
     Indication: PROPHYLAXIS AGAINST GASTROINTESTINAL ULCER
     Route: 048
  8. CONSTAN [Concomitant]
     Indication: INSOMNIA
     Route: 048
     Dates: start: 20060622, end: 20060718
  9. CONSTAN [Concomitant]
     Indication: INSOMNIA
     Route: 048
     Dates: end: 20060211
  10. MOHRUS TAPE [Concomitant]
     Indication: ANALGESIC THERAPY
     Dosage: AS MUCH AS IS SUFFICIENT, AS NEEDED
     Route: 062
  11. CODEINE PHOSPHATE [Concomitant]
     Indication: PAIN
     Dosage: 15 MG, AS NECESSARY, POWDER, ORAL
     Route: 048
  12. OSTELUC [Concomitant]
     Indication: ANALGESIC THERAPY
     Route: 048
     Dates: end: 20051109
  13. VASOLAN [Concomitant]
     Indication: ATRIAL FIBRILLATION
     Route: 048
     Dates: end: 20060227
  14. MUCOSTA [Concomitant]
     Indication: PROPHYLAXIS AGAINST GASTROINTESTINAL ULCER
     Route: 048
     Dates: start: 20050912, end: 20050912
  15. CARBOCAINE [Concomitant]
     Indication: ANALGESIC THERAPY
     Dosage: ON 12-SEP-2005 THE PATIENT WAS GIVEN A NERVE ROOT INJECTION WITH 4 ML MEPIVACAINE HYDROCHLORIDE 2%
     Route: 008
  16. DECADRON [Concomitant]
     Indication: ANALGESIC THERAPY
     Dosage: ON 12-SEP-2005 THE PATIENT WAS GIVEN A NERVE ROOT INJECTION WITH 4 ML DEXAMETHASONE
     Route: 008
     Dates: start: 20050912, end: 20050912
  17. ISOVIST [Concomitant]
     Indication: SPINAL MYELOGRAM
     Route: 008
     Dates: start: 20050912, end: 20050912
  18. FRANDOL [Concomitant]
     Indication: BLOOD PRESSURE INCREASED
     Dosage: ONE PATCH
     Route: 062
     Dates: start: 20050913, end: 20050913
  19. DOGMATYL [Concomitant]
     Indication: VERTIGO
     Route: 048
     Dates: start: 20060212
  20. SEPAZON [Concomitant]
     Indication: VERTIGO
     Route: 048
     Dates: start: 20060212, end: 20060217
  21. SEPAZON [Concomitant]
     Indication: VERTIGO
     Route: 048
     Dates: start: 20060227
  22. PABRON RHINITIS CAPSULE-S [Concomitant]
     Indication: NASOPHARYNGITIS
     Route: 048
     Dates: start: 20051019, end: 20051019
  23. BACCIDAL [Concomitant]
     Indication: NASOPHARYNGITIS
     Route: 048
     Dates: start: 20051019, end: 20051019
  24. NIFLAN [Concomitant]
     Indication: NASOPHARYNGITIS
     Route: 048
     Dates: start: 20051019, end: 20051019
  25. OHTA^S ANTACID POWDER [Concomitant]
     Indication: PROPHYLAXIS AGAINST GASTROINTESTINAL ULCER
     Route: 048
     Dates: start: 20051019, end: 20051019
  26. MERISLON [Concomitant]
     Indication: VERTIGO
     Route: 048
     Dates: start: 20060112, end: 20060330
  27. MERISLON [Concomitant]
     Indication: VERTIGO
     Route: 048
     Dates: start: 20060331, end: 20060718
  28. MAGMITT [Concomitant]
     Indication: CONSTIPATION
     Route: 048
     Dates: start: 20060227
  29. PRIMPERAN [Concomitant]
     Indication: VOMITING
     Route: 042
     Dates: start: 20060602, end: 20060602
  30. SOLITA-T [Concomitant]
     Indication: ELECTROLYTE IMBALANCE
     Route: 042
     Dates: start: 20060602, end: 20060602

REACTIONS (4)
  - Spinal compression fracture [Recovering/Resolving]
  - Gastroenteritis viral [Recovered/Resolved]
  - Dizziness [Recovered/Resolved]
  - Oropharyngeal pain [Recovered/Resolved]
